FAERS Safety Report 13184270 (Version 1)
Quarter: 2017Q1

REPORT INFORMATION
  Report Type: Spontaneous
  Country: US (occurrence: US)
  Receive Date: 20170203
  Receipt Date: 20170203
  Transmission Date: 20170428
  Serious: No
  Sender: FDA-Public Use
  Company Number: US-009507513-1702USA001564

PATIENT
  Age: 33 Year
  Sex: Female
  Weight: 60.77 kg

DRUGS (1)
  1. NUVARING [Suspect]
     Active Substance: ETHINYL ESTRADIOL\ETONOGESTREL
     Indication: CERVIX DISORDER
     Dosage: 3 WEEKS IN 1 WEEK OUT
     Route: 067
     Dates: start: 20170129

REACTIONS (2)
  - Haemorrhoids [Unknown]
  - Product use issue [Unknown]

NARRATIVE: CASE EVENT DATE: 20170129
